FAERS Safety Report 5176242-7 (Version None)
Quarter: 2006Q4

REPORT INFORMATION
  Report Type: 
  Country: None (occurrence: None)
  Receive Date: 20061215
  Receipt Date: 20060622
  Transmission Date: 20070319
  Serious: No
  Sender: FDA-Public Use
  Company Number: US-AMGEN-KDL184168

PATIENT
  Sex: Female

DRUGS (3)
  1. ENBREL [Suspect]
     Indication: RHEUMATOID ARTHRITIS
     Route: 058
     Dates: start: 20040901
  2. PLAQUENIL [Concomitant]
     Route: 048
     Dates: start: 20031229
  3. SULFASALAZINE [Concomitant]
     Route: 048
     Dates: start: 20040101

REACTIONS (2)
  - RECTAL POLYP [None]
  - SKIN CANCER [None]
